FAERS Safety Report 20032417 (Version 1)
Quarter: 2021Q4

REPORT INFORMATION
  Report Type: Other
  Country: ES (occurrence: None)
  Receive Date: 20211103
  Receipt Date: 20211103
  Transmission Date: 20220303
  Serious: Yes (Other)
  Sender: FDA-Public Use
  Company Number: ES-Invatech-000159

PATIENT
  Age: 50 Year
  Sex: Female

DRUGS (7)
  1. CALCITRIOL [Suspect]
     Active Substance: CALCITRIOL
     Indication: Product used for unknown indication
     Dosage: 0.5 MCG/24 H
  2. CALCIUM CARBONATE [Suspect]
     Active Substance: CALCIUM CARBONATE
     Indication: Product used for unknown indication
     Dosage: 1500 MG/24 H
  3. CALCIUM CITRATE [Suspect]
     Active Substance: CALCIUM CITRATE
     Indication: Product used for unknown indication
     Dosage: UP TO 3000 MG/24 H
  4. MAGNESIUM LACTATE [Concomitant]
     Active Substance: MAGNESIUM LACTATE
     Indication: Product used for unknown indication
     Dosage: 16 MEQ/12 H
  5. CALCITRIOL [Suspect]
     Active Substance: CALCITRIOL
     Indication: Product used for unknown indication
     Dosage: UP TO 4.5 MCG/24 H
  6. CALCIUM CARBONATE [Suspect]
     Active Substance: CALCIUM CARBONATE
     Indication: Product used for unknown indication
     Dosage: 3000 MG/24 H
  7. MAGNESIUM LACTATE [Concomitant]
     Active Substance: MAGNESIUM LACTATE
     Indication: Product used for unknown indication
     Dosage: 16 MEQ/12 H

REACTIONS (4)
  - Hypercalciuria [Unknown]
  - Hypocalcaemia [Recovered/Resolved]
  - Treatment failure [Unknown]
  - Drug ineffective [Unknown]
